FAERS Safety Report 5372649-3 (Version None)
Quarter: 2007Q2

REPORT INFORMATION
  Report Type: 
  Country: None (occurrence: None)
  Receive Date: 20070618
  Receipt Date: 20070426
  Transmission Date: 20071010
  Serious: Yes (Other)
  Sender: FDA-Public Use
  Company Number: 07-000962

PATIENT
  Age: 30 Year
  Sex: Female

DRUGS (1)
  1. LOESTRIN 24 FE [Suspect]
     Indication: OVARIAN CYST
     Dosage: 20/1000 UG, QD, ORAL
     Route: 048
     Dates: start: 20070101, end: 20070101

REACTIONS (1)
  - PULMONARY EMBOLISM [None]
